FAERS Safety Report 17501135 (Version 1)
Quarter: 2020Q1

REPORT INFORMATION
  Report Type: Spontaneous
  Country: US (occurrence: US)
  Receive Date: 20200305
  Receipt Date: 20200305
  Transmission Date: 20200409
  Serious: Yes (Other)
  Sender: FDA-Public Use
  Company Number: US-PFIZER INC-2020096298

PATIENT
  Age: 59 Year

DRUGS (2)
  1. RELPAX [Suspect]
     Active Substance: ELETRIPTAN HYDROBROMIDE
     Dosage: UNK
  2. TRIPTAN [OXITRIPTAN] [Suspect]
     Active Substance: OXITRIPTAN
     Dosage: UNK

REACTIONS (1)
  - Myocardial infarction [Unknown]
